FAERS Safety Report 13938530 (Version 2)
Quarter: 2020Q2

REPORT INFORMATION
  Report Type: Spontaneous
  Country: US (occurrence: US)
  Receive Date: 20170905
  Receipt Date: 20200428
  Transmission Date: 20200713
  Serious: Yes (Other)
  Sender: FDA-Public Use
  Company Number: US-BRISTOL-MYERS SQUIBB COMPANY-BMS-2017-077918

PATIENT
  Sex: Male

DRUGS (1)
  1. ELIQUIS [Suspect]
     Active Substance: APIXABAN
     Indication: MYOCARDIAL INFARCTION
     Dosage: UNKNOWN
     Route: 048

REACTIONS (6)
  - Product use in unapproved indication [Unknown]
  - Injury [Unknown]
  - Hypertension [Unknown]
  - Haemorrhage [Unknown]
  - Bone marrow disorder [Unknown]
  - Hypoaesthesia [Unknown]
